FAERS Safety Report 22237869 (Version 1)
Quarter: 2023Q2

REPORT INFORMATION
  Report Type: Spontaneous
  Country: SI (occurrence: SI)
  Receive Date: 20230421
  Receipt Date: 20230421
  Transmission Date: 20230722
  Serious: Yes (Other)
  Sender: FDA-Public Use
  Company Number: SI-PFIZER INC-202300152905

PATIENT
  Age: 49 Year
  Sex: Female

DRUGS (1)
  1. MEDROL [Suspect]
     Active Substance: METHYLPREDNISOLONE
     Indication: Inflammatory bowel disease
     Dosage: 48 MG
     Dates: start: 201811

REACTIONS (4)
  - Legionella infection [Unknown]
  - Pneumonia [Unknown]
  - Condition aggravated [Unknown]
  - Mood swings [Unknown]

NARRATIVE: CASE EVENT DATE: 20210101
